FAERS Safety Report 8395482-7 (Version None)
Quarter: 2012Q2

REPORT INFORMATION
  Report Type: 
  Country: None (occurrence: None)
  Receive Date: 20120530
  Receipt Date: 20110405
  Transmission Date: 20120825
  Serious: No
  Sender: FDA-Public Use
  Company Number: US-GLAXOSMITHKLINE-A0921466A

PATIENT
  Age: 5 Year
  Sex: Female

DRUGS (2)
  1. VENTOLIN [Suspect]
     Indication: BRONCHITIS
     Dosage: 1PUFF TWICE PER DAY
     Route: 055
     Dates: start: 20110318, end: 20110331
  2. OMNICEF [Suspect]
     Indication: INFECTIOUS MONONUCLEOSIS

REACTIONS (1)
  - HEAD TITUBATION [None]
